FAERS Safety Report 6636431-9 (Version None)
Quarter: 2010Q1

REPORT INFORMATION
  Report Type: 
  Country: None (occurrence: None)
  Receive Date: 20100316
  Receipt Date: 20100305
  Transmission Date: 20100710
  Serious: Yes (Hospitalization)
  Sender: FDA-Public Use
  Company Number: HU-ROCHE-685645

PATIENT
  Sex: Female
  Weight: 62 kg

DRUGS (7)
  1. BEVACIZUMAB [Suspect]
     Indication: NON-SMALL CELL LUNG CANCER
     Dosage: FREQUENCY:CYCLE, LAST DOSE PRIOR TO SAE 10 FEBRUARY 2010; FORM: INFUSION.
     Route: 042
     Dates: start: 20091111
  2. GEMCITABINE [Suspect]
     Indication: NON-SMALL CELL LUNG CANCER
     Dosage: FREQUENCY: 1 DAY-8 DAY, LAST DOSE PRIOR TO SAE 10 FEBRUARY 2010
     Route: 042
     Dates: start: 20091111
  3. CARBOPLATIN [Suspect]
     Indication: NON-SMALL CELL LUNG CANCER
     Dosage: FREQUENCY:1 DAY, LAST DOSE PRIOR TO SAE 10 FEBRUARY 2010
     Route: 042
     Dates: start: 20091111
  4. CARBOPLATIN [Suspect]
     Dosage: DOSE: 50 AUC
     Route: 042
  5. ONDANSETRON [Concomitant]
     Dates: start: 20091109
  6. APREPITANT [Concomitant]
     Dates: start: 20091130
  7. EPOGEN [Concomitant]
     Route: 058
     Dates: start: 20091231

REACTIONS (2)
  - EPISTAXIS [None]
  - HAEMATOCHEZIA [None]
